FAERS Safety Report 13840988 (Version 1)
Quarter: 2017Q3

REPORT INFORMATION
  Report Type: Spontaneous
  Country: US (occurrence: US)
  Receive Date: 20170807
  Receipt Date: 20170807
  Transmission Date: 20171127
  Serious: No
  Sender: FDA-Public Use
  Company Number: US-KVK-TECH, INC-2024287

PATIENT
  Sex: Female

DRUGS (1)
  1. BENZPHETAMINE HYDROCHLORIDE. [Suspect]
     Active Substance: BENZPHETAMINE HYDROCHLORIDE
     Indication: DECREASED APPETITE
     Route: 065

REACTIONS (2)
  - Drug ineffective [Unknown]
  - Fluid retention [Unknown]
